FAERS Safety Report 5781509-5 (Version None)
Quarter: 2008Q2

REPORT INFORMATION
  Report Type: 
  Country: None (occurrence: None)
  Receive Date: 20080623
  Receipt Date: 20080617
  Transmission Date: 20081010
  Serious: Yes (Life-Threatening, Other)
  Sender: FDA-Public Use
  Company Number: US-KINGPHARMUSA00001-K200800681

PATIENT

DRUGS (5)
  1. ALTACE [Suspect]
     Indication: HYPERTENSION
     Dosage: 5 MG, QD
     Route: 048
     Dates: end: 20080205
  2. DIAMICRON [Suspect]
     Indication: TYPE 2 DIABETES MELLITUS
     Dosage: 80 MG, TID
     Route: 048
     Dates: end: 20080205
  3. BUFLOMEDIL [Suspect]
     Indication: ARTERIAL DISORDER
     Dosage: 1 DF, TID
     Route: 048
     Dates: end: 20080205
  4. TORENTAL [Suspect]
     Indication: ARTERIAL DISORDER
     Dosage: 400 MG, TID
     Route: 048
     Dates: end: 20080205
  5. KARDEGIC                           /00002703/ [Suspect]
     Indication: THROMBOSIS PROPHYLAXIS
     Dosage: 160 MG, QD
     Route: 048

REACTIONS (6)
  - BACTERIAL PYELONEPHRITIS [None]
  - DISTURBANCE IN ATTENTION [None]
  - FACIAL PALSY [None]
  - HYPOGLYCAEMIA [None]
  - MALAISE [None]
  - RENAL FAILURE [None]
